FAERS Safety Report 15353527 (Version 1)
Quarter: 2018Q3

REPORT INFORMATION
  Report Type: Spontaneous
  Country: US (occurrence: US)
  Receive Date: 20180829
  Receipt Date: 20180829
  Transmission Date: 20181010
  Serious: Yes (Other)
  Sender: FDA-Public Use
  Company Number: None

PATIENT
  Age: 33 Year
  Sex: Male
  Weight: 70.31 kg

DRUGS (1)
  1. BUPRENORPHINE?NALOXONE [Suspect]
     Active Substance: BUPRENORPHINE HYDROCHLORIDE\NALOXONE HYDROCHLORIDE
     Indication: DRUG DEPENDENCE
     Route: 060
     Dates: start: 20180705

REACTIONS (8)
  - Nausea [None]
  - Pyrexia [None]
  - Chills [None]
  - Product dosage form issue [None]
  - Drug ineffective [None]
  - Insurance issue [None]
  - Headache [None]
  - Dry skin [None]

NARRATIVE: CASE EVENT DATE: 20180720
